FAERS Safety Report 9434590 (Version 1)
Quarter: 2013Q3

REPORT INFORMATION
  Report Type: Spontaneous
  Country: US (occurrence: US)
  Receive Date: 20130801
  Receipt Date: 20130801
  Transmission Date: 20140515
  Serious: No
  Sender: FDA-Public Use
  Company Number: US-PFIZER INC-2013221753

PATIENT
  Sex: Female

DRUGS (4)
  1. CALAN SR [Suspect]
     Indication: BLOOD PRESSURE ABNORMAL
     Dosage: 180 MG, UNK
     Dates: end: 20130327
  2. CALAN SR [Suspect]
     Dosage: 240 MG, UNK
     Dates: start: 20130327, end: 2013
  3. PROTONIX [Concomitant]
     Dosage: UNK
  4. NORCO [Concomitant]
     Indication: BACK INJURY
     Dosage: UNK

REACTIONS (1)
  - Alopecia [Unknown]
